FAERS Safety Report 12748189 (Version 1)
Quarter: 2016Q3

REPORT INFORMATION
  Report Type: Spontaneous
  Country: US (occurrence: US)
  Receive Date: 20160915
  Receipt Date: 20160915
  Transmission Date: 20161109
  Serious: No
  Sender: FDA-Public Use
  Company Number: US-ASTELLAS-2016US033492

PATIENT
  Sex: Male

DRUGS (1)
  1. XTANDI [Suspect]
     Active Substance: ENZALUTAMIDE
     Indication: PRODUCT USED FOR UNKNOWN INDICATION
     Route: 065
     Dates: start: 201605

REACTIONS (7)
  - Feeling abnormal [Unknown]
  - Dysstasia [Unknown]
  - Asthenia [Unknown]
  - Fall [Unknown]
  - Back disorder [Unknown]
  - Haematuria [Unknown]
  - Decreased appetite [Unknown]
